FAERS Safety Report 5516001-6 (Version None)
Quarter: 2007Q4

REPORT INFORMATION
  Report Type: 
  Country: None (occurrence: None)
  Receive Date: 20071114
  Receipt Date: 20061110
  Transmission Date: 20080405
  Serious: No
  Sender: FDA-Public Use
  Company Number: A0626841A

PATIENT

DRUGS (2)
  1. COMMIT [Suspect]
     Indication: DRUG USE FOR UNKNOWN INDICATION
  2. NICORETTE [Suspect]
     Indication: DRUG USE FOR UNKNOWN INDICATION

REACTIONS (1)
  - INTENTIONAL DRUG MISUSE [None]
